FAERS Safety Report 10589026 (Version 1)
Quarter: 2014Q4

REPORT INFORMATION
  Report Type: Spontaneous
  Country: JP (occurrence: JP)
  Receive Date: 20141118
  Receipt Date: 20141118
  Transmission Date: 20150529
  Serious: Yes (Other)
  Sender: FDA-Public Use
  Company Number: JP-AMGEN-JPNSP2014088655

PATIENT
  Age: 82 Year
  Sex: Female

DRUGS (1)
  1. ENBREL [Suspect]
     Active Substance: ETANERCEPT
     Indication: PRODUCT USED FOR UNKNOWN INDICATION
     Dosage: 25 MG, UNK
     Route: 058

REACTIONS (5)
  - Hepatic function abnormal [Unknown]
  - Immunosuppression [Unknown]
  - Pneumonia [Unknown]
  - Nasopharyngitis [Unknown]
  - Mumps [Unknown]

NARRATIVE: CASE EVENT DATE: 2013
